FAERS Safety Report 23848494 (Version 1)
Quarter: 2024Q2

REPORT INFORMATION
  Report Type: Spontaneous
  Country: US (occurrence: None)
  Receive Date: 20240511
  Receipt Date: 20240511
  Transmission Date: 20240715
  Serious: Yes (Hospitalization)
  Sender: FDA-Public Use
  Company Number: None

PATIENT
  Age: 58 Year
  Sex: Female
  Weight: 53 kg

DRUGS (3)
  1. FLUOROURACIL [Suspect]
     Active Substance: FLUOROURACIL
     Dates: end: 20240418
  2. LEUCOVORIN CALCIUM [Suspect]
     Active Substance: LEUCOVORIN CALCIUM
     Dates: end: 20240416
  3. OXALIPLATIN [Suspect]
     Active Substance: OXALIPLATIN
     Dates: end: 20240416

REACTIONS (4)
  - Diarrhoea [None]
  - Febrile neutropenia [None]
  - Enterocolitis [None]
  - Anaemia [None]

NARRATIVE: CASE EVENT DATE: 20240428
